FAERS Safety Report 4720794-5 (Version None)
Quarter: 2005Q3

REPORT INFORMATION
  Report Type: 
  Country: None (occurrence: None)
  Receive Date: 20050715
  Receipt Date: 20050701
  Transmission Date: 20060218
  Serious: No
  Sender: FDA-Public Use
  Company Number: 1646

PATIENT
  Age: 20 Year
  Sex: Male

DRUGS (1)
  1. AMNESTEEM [Suspect]
     Indication: ACNE
     Dosage: 40MG (+40MG EVERY THIRD DAY)/D
     Dates: start: 20050211

REACTIONS (1)
  - RETINAL TEAR [None]
